FAERS Safety Report 7606079-8 (Version None)
Quarter: 2011Q3

REPORT INFORMATION
  Report Type: 
  Country: None (occurrence: None)
  Receive Date: 20110713
  Receipt Date: 20110705
  Transmission Date: 20111222
  Serious: Yes (Hospitalization)
  Sender: FDA-Public Use
  Company Number: US-ELI_LILLY_AND_COMPANY-US201107001347

PATIENT
  Sex: Female

DRUGS (5)
  1. HUMALOG [Suspect]
     Dosage: 25 U, EACH MORNING
  2. HUMALOG [Suspect]
     Dosage: 25 U, EACH EVENING
  3. NOVOLOG [Concomitant]
     Dosage: UNK
     Dates: end: 20110601
  4. LANTUS [Concomitant]
     Indication: TYPE 2 DIABETES MELLITUS
     Dosage: 60 U, QD
     Route: 058
     Dates: start: 20110601
  5. HUMALOG [Suspect]
     Dosage: 25 U, OTHER

REACTIONS (4)
  - WOUND INFECTION STAPHYLOCOCCAL [None]
  - WOUND DECOMPOSITION [None]
  - DIABETIC FOOT [None]
  - BLOOD GLUCOSE INCREASED [None]
